FAERS Safety Report 25769212 (Version 2)
Quarter: 2025Q4

REPORT INFORMATION
  Report Type: Spontaneous
  Country: US (occurrence: US)
  Receive Date: 20250905
  Receipt Date: 20251020
  Transmission Date: 20260117
  Serious: No
  Sender: NOVARTIS
  Company Number: US-002147023-NVSC2025US135752

PATIENT
  Sex: Female

DRUGS (1)
  1. VOTRIENT [Suspect]
     Active Substance: PAZOPANIB HYDROCHLORIDE
     Indication: Bone cancer
     Dosage: 600 MG, QD
     Route: 048
     Dates: start: 202504

REACTIONS (5)
  - Sensitive skin [Unknown]
  - Miliaria [Unknown]
  - Diarrhoea [Unknown]
  - Headache [Unknown]
  - Thyroid hormones increased [Unknown]
